FAERS Safety Report 10951692 (Version 1)
Quarter: 2015Q1

REPORT INFORMATION
  Report Type: Report from Study
  Country: US (occurrence: US)
  Receive Date: 20150324
  Receipt Date: 20150324
  Transmission Date: 20150721
  Serious: Yes (Hospitalization)
  Sender: FDA-Public Use
  Company Number: US-AMGEN-2014-0879

PATIENT
  Age: 77 Year
  Sex: Male
  Weight: 111.2 kg

DRUGS (3)
  1. DECADRON [Concomitant]
     Active Substance: DEXAMETHASONE
     Indication: PLASMA CELL MYELOMA
     Dosage: 4 MG, DAYS 1,2,8,9,15,16, Q 28 DAYS
     Route: 042
     Dates: start: 20131230
  2. CYTOXAN [Concomitant]
     Active Substance: CYCLOPHOSPHAMIDE
     Indication: PLASMA CELL MYELOMA
     Dosage: 500 MG, QWK
     Route: 048
     Dates: start: 20131202
  3. KYPROLIS [Suspect]
     Active Substance: CARFILZOMIB
     Indication: PLASMA CELL MYELOMA
     Dosage: FREQ. TEXT: DAYS 1,2,8,9,15,16
     Route: 042
     Dates: start: 20131202

REACTIONS (3)
  - Pyrexia [Not Recovered/Not Resolved]
  - Pyrexia [Not Recovered/Not Resolved]
  - Febrile convulsion [Unknown]

NARRATIVE: CASE EVENT DATE: 20140106
